FAERS Safety Report 5625406-4 (Version None)
Quarter: 2008Q1

REPORT INFORMATION
  Report Type: 
  Country: None (occurrence: None)
  Receive Date: 20080211
  Receipt Date: 20080128
  Transmission Date: 20080703
  Serious: Yes (Other)
  Sender: FDA-Public Use
  Company Number: 2008US000411

PATIENT
  Age: 79 Year
  Sex: Female
  Weight: 56.7 kg

DRUGS (18)
  1. VESICARE(SOLIFENACIN) TABLET, UNKNOWN [Suspect]
     Indication: HYPERTONIC BLADDER
     Dosage: 5 MG, UID/QD, ORAL
     Route: 048
  2. GEMFIBROZIL [Concomitant]
  3. COLESEVELAM (COLESEVELAM) [Concomitant]
  4. ATORVASTATIN CALCIUM [Concomitant]
  5. LEVOTHYROXINE SODIUM [Concomitant]
  6. FUROSEMIDE [Concomitant]
  7. AMLODIPINE [Concomitant]
  8. CLOPIDOGREL [Concomitant]
  9. ASPIRIN [Concomitant]
  10. ESOMEPRAZOLE (ESOMEPRAZOLE) [Concomitant]
  11. QUINAPRIL HCL [Concomitant]
  12. CARVEDILOL [Concomitant]
  13. TROSPIUM CHLORIDE (TROSPIUM CHLORIDE) [Concomitant]
  14. TOLTERODINE TARTRATE [Concomitant]
  15. DONEPEZIL HCL [Concomitant]
  16. CYCLOBENZAPRINE (CYCLOBLENZAPRINE) [Concomitant]
  17. MULTIVITAMIN [Concomitant]
  18. IBUPROFEN [Concomitant]

REACTIONS (13)
  - ABNORMAL BEHAVIOUR [None]
  - BLOOD PRESSURE INADEQUATELY CONTROLLED [None]
  - CONFUSIONAL STATE [None]
  - DECREASED ACTIVITY [None]
  - DELIRIUM [None]
  - DEMENTIA ALZHEIMER'S TYPE [None]
  - DRUG INTERACTION [None]
  - IMPAIRED SELF-CARE [None]
  - INCORRECT DOSE ADMINISTERED [None]
  - MEDICATION ERROR [None]
  - MUSCLE SPASMS [None]
  - NO THERAPEUTIC RESPONSE [None]
  - TREATMENT NONCOMPLIANCE [None]
